FAERS Safety Report 22201931 (Version 2)
Quarter: 2023Q2

REPORT INFORMATION
  Report Type: Spontaneous
  Country: JP (occurrence: JP)
  Receive Date: 20230412
  Receipt Date: 20230428
  Transmission Date: 20230722
  Serious: Yes (Hospitalization, Other)
  Sender: FDA-Public Use
  Company Number: JP-MYLANLABS-2023M1037304

PATIENT
  Age: 50 Year
  Sex: Female

DRUGS (2)
  1. AMLODIPINE [Suspect]
     Active Substance: AMLODIPINE BESYLATE
     Indication: Essential hypertension
     Dosage: 400 MILLIGRAM
     Route: 048
  2. AMLODIPINE [Suspect]
     Active Substance: AMLODIPINE BESYLATE
     Dosage: 5 MILLIGRAM
     Route: 048

REACTIONS (11)
  - Overdose [Unknown]
  - Abdominal pain upper [Unknown]
  - Chest pain [Unknown]
  - Pancreatitis acute [Unknown]
  - Cardiogenic shock [Recovering/Resolving]
  - Defect conduction intraventricular [Recovering/Resolving]
  - Circulatory collapse [Recovering/Resolving]
  - Cardiac dysfunction [Recovering/Resolving]
  - Tachypnoea [Unknown]
  - Hypotension [Recovered/Resolved]
  - Toxicity to various agents [Unknown]
